FAERS Safety Report 6182450-9 (Version None)
Quarter: 2009Q2

REPORT INFORMATION
  Report Type: 
  Country: None (occurrence: None)
  Receive Date: 20090507
  Receipt Date: 20090429
  Transmission Date: 20091009
  Serious: Yes (Other)
  Sender: FDA-Public Use
  Company Number: GB-ROCHE-620677

PATIENT
  Age: 38 Year
  Sex: Female

DRUGS (1)
  1. LARIAM [Suspect]
     Indication: MALARIA PROPHYLAXIS
     Route: 065

REACTIONS (5)
  - ANXIETY [None]
  - BRAIN INJURY [None]
  - CONVULSION [None]
  - FEAR [None]
  - MEMORY IMPAIRMENT [None]
